FAERS Safety Report 14850249 (Version 1)
Quarter: 2018Q2

REPORT INFORMATION
  Report Type: Spontaneous
  Country: KR (occurrence: KR)
  Receive Date: 20180505
  Receipt Date: 20180505
  Transmission Date: 20180711
  Serious: Yes (Death)
  Sender: FDA-Public Use
  Company Number: KR-ACCORD-066604

PATIENT
  Age: 56 Year
  Sex: Male

DRUGS (9)
  1. LACTULOSE. [Concomitant]
     Active Substance: LACTULOSE
     Dates: start: 20180201
  2. TOPOTECAN [Suspect]
     Active Substance: TOPOTECAN HYDROCHLORIDE
     Indication: SMALL CELL LUNG CANCER
     Route: 041
     Dates: start: 20180129
  3. FENTANYL/FENTANYL CITRATE [Concomitant]
     Dates: start: 20180110
  4. DULOXETINE. [Concomitant]
     Active Substance: DULOXETINE
     Dates: start: 20180222
  5. AMBROXOL [Concomitant]
     Active Substance: AMBROXOL
     Dates: start: 20150711
  6. TARGIN [Concomitant]
     Active Substance: NALOXONE HYDROCHLORIDE\OXYCODONE HYDROCHLORIDE
     Dates: start: 20180110
  7. LANSOPRAZOLE. [Concomitant]
     Active Substance: LANSOPRAZOLE
     Dates: start: 20180403
  8. MEGESTROL [Concomitant]
     Active Substance: MEGESTROL
     Dates: start: 20180228
  9. OFLOXACIN. [Concomitant]
     Active Substance: OFLOXACIN
     Dates: start: 20180404

REACTIONS (3)
  - Lung cancer metastatic [Fatal]
  - Hypophagia [None]
  - Nausea [None]
